FAERS Safety Report 18388442 (Version 1)
Quarter: 2020Q4

REPORT INFORMATION
  Report Type: Report from Study
  Country: MX (occurrence: MX)
  Receive Date: 20201015
  Receipt Date: 20201015
  Transmission Date: 20210114
  Serious: Yes (Death)
  Sender: FDA-Public Use
  Company Number: NVSC2020MX277701

PATIENT
  Sex: Male
  Weight: 68 kg

DRUGS (1)
  1. ENTRESTO [Suspect]
     Active Substance: SACUBITRIL\VALSARTAN
     Indication: CARDIAC DISORDER
     Dosage: 1 DF, QD (START DATE: ABOUT 3 YEARS AGO)
     Route: 048
     Dates: end: 202007

REACTIONS (4)
  - Infarction [Fatal]
  - Product use in unapproved indication [Unknown]
  - Product prescribing error [Unknown]
  - Emphysema [Fatal]
